FAERS Safety Report 9500256 (Version 1)
Quarter: 2013Q1

REPORT INFORMATION
  Report Type: Spontaneous
  Country: US (occurrence: None)
  Receive Date: 20130129
  Receipt Date: 20130129
  Transmission Date: 20140127
  Serious: Yes (Other)
  Sender: FDA-Public Use
  Company Number: 1000040775

PATIENT
  Age: 68 Year
  Sex: Female

DRUGS (4)
  1. BYSTOLIC [Suspect]
     Indication: HYPERTENSION
     Route: 048
     Dates: start: 20121119
  2. TEKTURNA (ALISKIREN FUMARATE) (ALISKIREN FUMARATE) [Concomitant]
  3. HYDROCHLOROTHIAZIDE (HYDROCHLOROTHIAZIDE) (HYDROCHLOROTHIAZIDE) [Concomitant]
  4. PIOGLITAZONE (PIOGLITAZONE) (PIOGLITAZONE) [Concomitant]

REACTIONS (1)
  - Hypertension [None]
